FAERS Safety Report 19378062 (Version 4)
Quarter: 2021Q3

REPORT INFORMATION
  Report Type: Spontaneous
  Country: US (occurrence: US)
  Receive Date: 20210604
  Receipt Date: 20210908
  Transmission Date: 20211014
  Serious: Yes (Other)
  Sender: FDA-Public Use
  Company Number: US-SA-2021SA185030

PATIENT
  Age: 49 Year
  Sex: Female

DRUGS (1)
  1. KEVZARA [Suspect]
     Active Substance: SARILUMAB
     Indication: RHEUMATOID ARTHRITIS
     Dosage: 200 MG, QOW
     Route: 058
     Dates: start: 20210212

REACTIONS (5)
  - Hemianaesthesia [Unknown]
  - Confusional state [Unknown]
  - Arthralgia [Unknown]
  - Injection site rash [Unknown]
  - Hordeolum [Unknown]

NARRATIVE: CASE EVENT DATE: 2021
